FAERS Safety Report 9232827 (Version 1)
Quarter: 2013Q2

REPORT INFORMATION
  Report Type: Spontaneous
  Country: US (occurrence: None)
  Receive Date: 20130415
  Receipt Date: 20130415
  Transmission Date: 20140414
  Serious: Yes (Other)
  Sender: FDA-Public Use
  Company Number: None

PATIENT
  Age: 64 Year
  Sex: Female
  Weight: 68.04 kg

DRUGS (1)
  1. DULERA [Suspect]
     Indication: ASTHMA
     Dosage: 2 PUFFS TWICE A DAY INHAL
     Route: 055
     Dates: start: 20130206, end: 20130301

REACTIONS (5)
  - Fatigue [None]
  - Hypersomnia [None]
  - Pain [None]
  - Influenza [None]
  - Anxiety [None]
